FAERS Safety Report 13946540 (Version 4)
Quarter: 2017Q4

REPORT INFORMATION
  Report Type: Report from Study
  Country: CO (occurrence: CO)
  Receive Date: 20170907
  Receipt Date: 20171103
  Transmission Date: 20180320
  Serious: Yes (Hospitalization)
  Sender: FDA-Public Use
  Company Number: PHHY2016CO032622

PATIENT
  Sex: Male
  Weight: 72 kg

DRUGS (3)
  1. HYDROXYUREA. [Concomitant]
     Active Substance: HYDROXYUREA
     Indication: PRODUCT USED FOR UNKNOWN INDICATION
     Dosage: 500 MG, Q12H
     Route: 065
  2. TASIGNA [Suspect]
     Active Substance: NILOTINIB
     Indication: CHRONIC MYELOID LEUKAEMIA
     Dosage: 2 DF OF 200 MG, Q12H
     Route: 048
     Dates: start: 20151214
  3. TASIGNA [Suspect]
     Active Substance: NILOTINIB
     Dosage: 2 DF OF 200 MG, Q12H
     Route: 048
     Dates: start: 20160127

REACTIONS (7)
  - Splenitis [Recovering/Resolving]
  - Gastritis [Recovering/Resolving]
  - Hepatomegaly [Unknown]
  - Abdominal pain [Unknown]
  - Abdominal distension [Unknown]
  - Hepatitis [Recovering/Resolving]
  - Red blood cell count decreased [Recovering/Resolving]
